FAERS Safety Report 4598308-2 (Version None)
Quarter: 2005Q1

REPORT INFORMATION
  Report Type: 
  Country: None (occurrence: None)
  Receive Date: 20050302
  Receipt Date: 20050216
  Transmission Date: 20050727
  Serious: Yes (Hospitalization, Other)
  Sender: FDA-Public Use
  Company Number: USA-2002-0003810

PATIENT
  Age: 26 Year
  Sex: Female
  Weight: 92.6 kg

DRUGS (38)
  1. OXYCONTIN [Suspect]
     Indication: PAIN
     Dosage: SEE IMAGE
     Route: 048
     Dates: start: 19990119, end: 20020101
  2. OXYCONTIN [Suspect]
     Indication: PAIN
     Dosage: SEE IMAGE
     Route: 048
     Dates: start: 19991224
  3. OXYCONTIN [Suspect]
     Indication: PAIN
     Dosage: SEE IMAGE
     Route: 048
     Dates: start: 20001228
  4. OXYCONTIN [Suspect]
     Indication: PAIN
     Dosage: SEE IMAGE
     Route: 048
     Dates: start: 20020305
  5. OYIR CAPSULES 5 MG (OXYCODONE HYDROCHLORIDE) IR CAPSULE [Suspect]
     Indication: PAIN
     Dosage: 5 MG, ORAL
     Route: 048
     Dates: start: 20010228, end: 20020101
  6. PROZAC [Suspect]
     Indication: DEPRESSION
     Dates: start: 20001228, end: 20011204
  7. PAXIL (PAROXETNE HYDROCHLORIDE) [Suspect]
     Indication: DEPRESSION
     Dates: start: 20010215
  8. NAPROSYN [Concomitant]
  9. FLOVENT [Concomitant]
  10. ALBUTEROL [Concomitant]
  11. PREVACID [Concomitant]
  12. CIPROFLOXACIN [Concomitant]
  13. CLINDAMYCIN (CLINDAMYCIN) [Concomitant]
  14. LASIX [Concomitant]
  15. ACETAMINOPHEN AND HYDROCODONE BITARTRATE [Concomitant]
  16. PROMETHAZINE [Concomitant]
  17. DHCPLUS CAPSULE (CAFFINE, PARACETAMOL, DIHYDROCODEINE, PARACETAMOL, CA [Concomitant]
  18. NOTUSS (CHLORPHENAMINE) [Concomitant]
  19. BIAXIN [Concomitant]
  20. METHYLPREDNISOLONE [Concomitant]
  21. NYSTATIN [Concomitant]
  22. TRIPHASIL (LEVONORGESTREL, ETHINYLESTRADIOL) [Concomitant]
  23. AUGMENTIN (CLAVULANATE POTASSIUM, AMOXICILLIN TRIHYDRATE) [Concomitant]
  24. PROVENTIL [Concomitant]
  25. CENTRUM (VITAMINS NOS, MINREALS NOS) [Concomitant]
  26. CELEBREX [Concomitant]
  27. PROGESTERONE [Concomitant]
  28. DURAGESIC (FENTANYL) [Concomitant]
  29. LEVAQUIN [Concomitant]
  30. CLAFORAN [Concomitant]
  31. MONISTATE (MICONAZOLE NITRATE) [Concomitant]
  32. DILFUCAN (FLUCONAZOLE) [Concomitant]
  33. MICRONOR [Concomitant]
  34. BENZAC AC (BENZOYL PEROXIDE) [Concomitant]
  35. ZITHROMAX [Concomitant]
  36. ANUSOL-HC (HYDROCORTISONE ACETATE, RESORCINOL, BENZYL BENZOATE, ZINC O [Concomitant]
  37. MARIJUANA (CANNABIS) [Concomitant]
  38. METHADONE (METHADONE) [Concomitant]

REACTIONS (30)
  - ABDOMINAL DISTENSION [None]
  - ABDOMINAL PAIN UPPER [None]
  - ADVERSE EVENT [None]
  - ANXIETY [None]
  - CANDIDIASIS [None]
  - CONSTIPATION [None]
  - DEPRESSION [None]
  - DRUG ABUSER [None]
  - DRUG DEPENDENCE [None]
  - DRUG EFFECT DECREASED [None]
  - DRUG INTERACTION [None]
  - DRUG TOLERANCE INCREASED [None]
  - DRUG TOXICITY [None]
  - DRUG WITHDRAWAL SYNDROME [None]
  - DYSMENORRHOEA [None]
  - DYSPEPSIA [None]
  - FATIGUE [None]
  - FUNGAL INFECTION [None]
  - HOT FLUSH [None]
  - HYPERTENSION [None]
  - LIBIDO DECREASED [None]
  - LYMPHADENOPATHY [None]
  - NAUSEA [None]
  - OVARIAN CYST [None]
  - PAIN [None]
  - PELVIC PERITONEAL ADHESIONS [None]
  - SINUSITIS [None]
  - TOOTH DISORDER [None]
  - TOOTH EXTRACTION [None]
  - WEIGHT DECREASED [None]
